FAERS Safety Report 15339638 (Version 2)
Quarter: 2018Q3

REPORT INFORMATION
  Report Type: Spontaneous
  Country: TR (occurrence: TR)
  Receive Date: 20180831
  Receipt Date: 20180911
  Transmission Date: 20181010
  Serious: Yes (Other)
  Sender: FDA-Public Use
  Company Number: TR-PFIZER INC-2018345139

PATIENT
  Age: 51 Year
  Sex: Female

DRUGS (1)
  1. CRIZOTINIB [Suspect]
     Active Substance: CRIZOTINIB
     Indication: NON-SMALL CELL LUNG CANCER
     Dosage: 500 MG(2X250 MG), 1X/DAY
     Dates: start: 201509

REACTIONS (5)
  - Dysgeusia [Unknown]
  - Neutropenia [Unknown]
  - Tonsillitis bacterial [Unknown]
  - Primary hypothyroidism [Unknown]
  - Neoplasm progression [Unknown]

NARRATIVE: CASE EVENT DATE: 201510
